FAERS Safety Report 9384396 (Version 1)
Quarter: 2013Q3

REPORT INFORMATION
  Report Type: Spontaneous
  Country: IN (occurrence: IN)
  Receive Date: 20130705
  Receipt Date: 20130705
  Transmission Date: 20140515
  Serious: Yes (Life-Threatening, Hospitalization, Other)
  Sender: FDA-Public Use
  Company Number: IN-ROXANE LABORATORIES, INC.-2013-RO-01079RO

PATIENT
  Age: 55 Year
  Sex: Female

DRUGS (9)
  1. DEXAMETHASONE [Suspect]
     Indication: LYMPHOMA
     Dosage: 16 MG
  2. FLUCONAZOLE [Suspect]
     Indication: ORAL CANDIDIASIS
     Dosage: 400 MG
     Route: 048
  3. AMOXICILLIN CLAVULANATE [Suspect]
     Indication: ORAL CANDIDIASIS
     Dosage: 1.25 G
  4. PREDNISOLONE [Suspect]
     Indication: LYMPHOMA
     Dosage: 40 MG
     Route: 048
  5. PREDNISOLONE [Suspect]
     Dosage: 100 MG
     Route: 048
  6. CEFOTAXIME [Suspect]
     Indication: INFECTION PROPHYLAXIS
     Dosage: 6 G
  7. AMIKACIN [Suspect]
     Indication: INFECTION PROPHYLAXIS
     Dosage: 750 MG
  8. CYCLOPHOSPHAMIDE [Suspect]
     Indication: LYMPHOMA
  9. VINCRISTINE [Suspect]
     Indication: LYMPHOMA

REACTIONS (7)
  - Bacteraemia [Unknown]
  - Neutrophil count abnormal [Unknown]
  - Deep vein thrombosis [Unknown]
  - Pulmonary hypertension [Unknown]
  - Cardiac failure congestive [Unknown]
  - Oral candidiasis [Unknown]
  - Somnolence [Unknown]
